FAERS Safety Report 4836452-2 (Version None)
Quarter: 2005Q4

REPORT INFORMATION
  Report Type: 
  Country: None (occurrence: None)
  Receive Date: 20051123
  Receipt Date: 20051111
  Transmission Date: 20060501
  Serious: Yes (Hospitalization)
  Sender: FDA-Public Use
  Company Number: PHEH2005US12470

PATIENT
  Age: 54 Year
  Sex: Female

DRUGS (10)
  1. ZELNORM [Suspect]
     Dosage: 6 MG, UNK
     Route: 048
     Dates: start: 20051103, end: 20051104
  2. ZELNORM [Suspect]
     Dosage: 1/2 6 MG TABLET, BID
     Route: 048
     Dates: start: 20051107
  3. NEURONTIN [Suspect]
     Dates: start: 20051103
  4. EFFEXOR [Concomitant]
  5. WELLBUTRIN [Concomitant]
  6. TRAZODONE [Concomitant]
  7. PANTOPRAZOLE [Concomitant]
  8. ALLEGRA [Concomitant]
  9. ADVAIR DISKUS 100/50 [Concomitant]
  10. LIPITOR [Concomitant]

REACTIONS (4)
  - CONVULSION [None]
  - DISORIENTATION [None]
  - DIZZINESS [None]
  - TREMOR [None]
